FAERS Safety Report 9344332 (Version 1)
Quarter: 2013Q2

REPORT INFORMATION
  Report Type: Report from Study
  Country: CN (occurrence: CN)
  Receive Date: 20130612
  Receipt Date: 20130612
  Transmission Date: 20140414
  Serious: Yes (Death, Other)
  Sender: FDA-Public Use
  Company Number: CN-ASTELLAS-2013US006117

PATIENT
  Age: 73 Year
  Sex: Male

DRUGS (2)
  1. ERLOTINIB TABLET [Suspect]
     Dosage: 150 MG, UID/QD
     Route: 048
     Dates: start: 20110324, end: 201305
  2. ERLOTINIB TABLET [Suspect]
     Dosage: 600 MG, UID/QD
     Route: 048
     Dates: start: 201305

REACTIONS (3)
  - Overdose [Unknown]
  - Asthenia [Unknown]
  - Dyspnoea [Fatal]
